FAERS Safety Report 8885252 (Version 1)
Quarter: 2012Q4

REPORT INFORMATION
  Report Type: 
  Country: US (occurrence: US)
  Receive Date: 20121102
  Receipt Date: 20121102
  Transmission Date: 20130627
  Serious: No
  Sender: FDA-Public Use
  Company Number: US-PFIZER INC-2012268932

PATIENT
  Age: 45 Year
  Sex: Female
  Weight: 86.17 kg

DRUGS (4)
  1. SERTRALINE HCL [Suspect]
     Indication: DEPRESSION
     Dosage: total of 75 mg (by taking 50 mg plus taking half of 50 mg) daily
     Route: 048
     Dates: start: 2010
  2. SERTRALINE HCL [Suspect]
     Indication: ANXIETY
  3. XANAX [Concomitant]
     Indication: ANXIETY
     Dosage: (splitting the 0.25mg tablets into half) as needed
     Route: 048
  4. PEPCID [Concomitant]
     Indication: ACID REFLUX (ESOPHAGEAL)
     Dosage: 20 mg, daily

REACTIONS (2)
  - Product quality issue [Unknown]
  - Dysgeusia [Unknown]
